FAERS Safety Report 4659890-X (Version None)
Quarter: 2005Q2

REPORT INFORMATION
  Report Type: 
  Country: None (occurrence: None)
  Receive Date: 20050502
  Receipt Date: 20041203
  Transmission Date: 20051028
  Serious: Yes (Hospitalization)
  Sender: FDA-Public Use
  Company Number: KDL101956

PATIENT
  Age: 69 Year
  Sex: Female

DRUGS (7)
  1. PROCRIT [Suspect]
     Indication: RENAL FAILURE CHRONIC
     Dosage: 1 IN 1 WEEKS
     Dates: start: 20040801, end: 20040901
  2. AMLODIPINE BESYLATE [Concomitant]
  3. METOPROLOL TARTRATE [Concomitant]
  4. BISOPROLOL FUMARATE [Concomitant]
  5. ESCITALOPRAM OXALATE [Concomitant]
  6. MULTI-VITAMINS [Concomitant]
  7. EZETIMIBE [Concomitant]

REACTIONS (2)
  - CONDITION AGGRAVATED [None]
  - HYPERTENSION [None]
